FAERS Safety Report 5276077-0 (Version None)
Quarter: 2007Q1

REPORT INFORMATION
  Report Type: 
  Country: None (occurrence: None)
  Receive Date: 20070326
  Receipt Date: 20070313
  Transmission Date: 20070707
  Serious: Yes (Other)
  Sender: FDA-Public Use
  Company Number: PHBS2007JP03523

PATIENT
  Age: 15 Year
  Sex: Female

DRUGS (8)
  1. TACROLIMUS [Suspect]
     Indication: CORD BLOOD TRANSPLANT THERAPY
     Route: 065
  2. SANDOSTATIN [Suspect]
     Indication: DIARRHOEA
     Route: 065
  3. SANDIMMUNE [Suspect]
     Indication: CORD BLOOD TRANSPLANT THERAPY
     Dosage: UNK, UNK
     Route: 042
     Dates: start: 20060301
  4. STEROIDS NOS [Suspect]
     Indication: CORD BLOOD TRANSPLANT THERAPY
  5. FLUDARABINE [Suspect]
     Indication: CORD BLOOD TRANSPLANT THERAPY
  6. BUSULFAN [Suspect]
     Indication: CORD BLOOD TRANSPLANT THERAPY
  7. DEXAMETHASONE [Concomitant]
  8. IMMUNE GLOBULIN INTRAVENOUS (HUMAN) [Concomitant]

REACTIONS (18)
  - CONVULSION [None]
  - CYTOMEGALOVIRUS ANTIGEN POSITIVE [None]
  - CYTOMEGALOVIRUS CHORIORETINITIS [None]
  - DEPRESSED LEVEL OF CONSCIOUSNESS [None]
  - DIARRHOEA [None]
  - DIARRHOEA HAEMORRHAGIC [None]
  - DYSKINESIA [None]
  - DYSPHAGIA [None]
  - GRAFT VERSUS HOST DISEASE [None]
  - HAEMORRHAGE [None]
  - HISTIOCYTOSIS HAEMATOPHAGIC [None]
  - ORAL PAIN [None]
  - PYREXIA [None]
  - RASH GENERALISED [None]
  - SHOCK HAEMORRHAGIC [None]
  - SKIN EROSION [None]
  - THROMBOTIC MICROANGIOPATHY [None]
  - WHITE BLOOD CELL COUNT DECREASED [None]
